FAERS Safety Report 5268405-7 (Version None)
Quarter: 2007Q1

REPORT INFORMATION
  Report Type: 
  Country: None (occurrence: None)
  Receive Date: 20070319
  Receipt Date: 20070308
  Transmission Date: 20070707
  Serious: Yes (Other)
  Sender: FDA-Public Use
  Company Number: PHBS2007JP04452

PATIENT
  Age: 73 Year
  Sex: Male

DRUGS (3)
  1. VOLTAREN [Suspect]
     Route: 048
  2. LOXONIN [Concomitant]
  3. FOIPAN [Concomitant]
     Indication: PANCREATITIS

REACTIONS (2)
  - RENAL ATROPHY [None]
  - RENAL IMPAIRMENT [None]
